FAERS Safety Report 9341874 (Version 2)
Quarter: 2013Q2

REPORT INFORMATION
  Report Type: Spontaneous
  Country: PE (occurrence: PE)
  Receive Date: 20130611
  Receipt Date: 20130620
  Transmission Date: 20140414
  Serious: Yes (Death, Other)
  Sender: FDA-Public Use
  Company Number: PE-PFIZER INC-2013175394

PATIENT
  Age: 82 Year
  Sex: Female

DRUGS (1)
  1. LYRICA [Suspect]
     Indication: PAIN
     Route: 048

REACTIONS (3)
  - Pneumonia [Fatal]
  - Device related infection [Unknown]
  - Cardiac disorder [Unknown]
